FAERS Safety Report 5554515-3 (Version None)
Quarter: 2007Q4

REPORT INFORMATION
  Report Type: 
  Country: None (occurrence: None)
  Receive Date: 20071213
  Receipt Date: 20071129
  Transmission Date: 20080405
  Serious: Yes (Hospitalization)
  Sender: FDA-Public Use
  Company Number: DE-AMGEN-US255546

PATIENT
  Age: 26 Year

DRUGS (1)
  1. ENBREL [Suspect]
     Indication: JUVENILE ARTHRITIS
     Dosage: UNKNOWN
     Route: 065

REACTIONS (5)
  - BLOOD LACTATE DEHYDROGENASE ABNORMAL [None]
  - CYTOMEGALOVIRUS INFECTION [None]
  - GAMMA-GLUTAMYLTRANSFERASE INCREASED [None]
  - PYREXIA [None]
  - TURNER'S SYNDROME [None]
